FAERS Safety Report 9541930 (Version 2)
Quarter: 2013Q4

REPORT INFORMATION
  Report Type: Report from Study
  Country: BR (occurrence: BR)
  Receive Date: 20130923
  Receipt Date: 20131022
  Transmission Date: 20140711
  Serious: Yes (Hospitalization, Other)
  Sender: FDA-Public Use
  Company Number: PHHY2013BR104920

PATIENT
  Age: 37 Year
  Sex: Female
  Weight: 85.6 kg

DRUGS (10)
  1. SANDOSTATIN LAR [Suspect]
     Indication: ACROMEGALY
     Dosage: 1 DF, EVERY 28 DAYS
     Route: 030
     Dates: start: 201206, end: 20130828
  2. SANDOSTATIN LAR [Suspect]
     Dosage: 1 DF, EVERY 21 DAYS
     Route: 030
  3. IMIPRAMINE [Concomitant]
     Indication: DEPRESSION
     Dosage: 03 DF, PER DAY
     Route: 048
     Dates: start: 2009
  4. PREDNISONE [Concomitant]
     Dosage: 01 DF, PER DAY
     Route: 048
  5. FERROUS SULFATE [Concomitant]
     Indication: ANAEMIA
     Dosage: 900 MG, DAILY
     Dates: start: 201204
  6. FERROUS SULFATE [Concomitant]
     Dosage: 03 DF, PER DAY
     Route: 048
  7. FOLIC ACID [Concomitant]
     Indication: BLOOD DISORDER
     Dosage: 1 DF, PER DAY
     Route: 048
     Dates: start: 2012
  8. ENALAPRIL [Concomitant]
     Indication: HYPERTENSION
     Dosage: UNK UKN, UNK
     Dates: start: 2012
  9. ENALAPRIL [Concomitant]
     Dosage: 02 DF, PER DAY
     Route: 048
  10. CARVEDILOL [Concomitant]
     Indication: VASODILATATION
     Dosage: 2 DF, PER DAY
     Route: 048
     Dates: start: 2012

REACTIONS (4)
  - Haemorrhage [Not Recovered/Not Resolved]
  - Ovarian cyst [Not Recovered/Not Resolved]
  - Diabetes mellitus [Not Recovered/Not Resolved]
  - Pain [Not Recovered/Not Resolved]
